FAERS Safety Report 7727217-2 (Version None)
Quarter: 2011Q3

REPORT INFORMATION
  Report Type: 
  Country: None (occurrence: None)
  Receive Date: 20110902
  Receipt Date: 20110826
  Transmission Date: 20111222
  Serious: Yes (Hospitalization, Other)
  Sender: FDA-Public Use
  Company Number: AR-JNJFOC-20091206025

PATIENT
  Sex: Female
  Weight: 70.6 kg

DRUGS (13)
  1. METHOTREXATE [Suspect]
     Indication: RHEUMATOID ARTHRITIS
     Route: 048
  2. EYE DROPS NOS [Concomitant]
     Route: 047
     Dates: start: 20060901
  3. METHOTREXATE [Concomitant]
     Route: 048
     Dates: start: 20080613
  4. GOLIMUMAB [Suspect]
     Indication: RHEUMATOID ARTHRITIS
     Route: 058
     Dates: start: 20080317
  5. GOLIMUMAB [Suspect]
     Route: 058
     Dates: start: 20091123
  6. PANTAS [Concomitant]
     Route: 048
     Dates: start: 20090514
  7. ASCORBIC ACID [Concomitant]
     Route: 048
     Dates: start: 20070621
  8. CLONAZEPAM [Concomitant]
     Route: 048
     Dates: start: 20060201
  9. PLACEBO [Suspect]
     Indication: RHEUMATOID ARTHRITIS
     Route: 058
     Dates: start: 20070319
  10. RANITIDINA [Concomitant]
     Route: 048
     Dates: start: 20060201
  11. DICLOFENAC SODIUM [Concomitant]
     Route: 048
     Dates: start: 20070216
  12. GINSENG [Concomitant]
     Route: 048
     Dates: start: 20070621
  13. ACIFOL [Concomitant]
     Route: 048
     Dates: start: 20070325

REACTIONS (1)
  - BREAST CANCER [None]
